FAERS Safety Report 8311241-5 (Version None)
Quarter: 2012Q2

REPORT INFORMATION
  Report Type: 
  Country: None (occurrence: None)
  Receive Date: 20120425
  Receipt Date: 20120416
  Transmission Date: 20120825
  Serious: Yes (Other)
  Sender: FDA-Public Use
  Company Number: US-GLAXOSMITHKLINE-A0932237A

PATIENT
  Age: 26 Year
  Sex: Female
  Weight: 104.5 kg

DRUGS (3)
  1. ALPRAZOLAM [Suspect]
     Indication: ANXIETY
     Dosage: .5Z PER DAY
     Dates: start: 20110615, end: 20110620
  2. LAMICTAL [Suspect]
     Indication: DEPRESSION
     Dosage: 100MG PER DAY
     Route: 048
     Dates: start: 20110428
  3. LOESTRIN 1.5/30 [Suspect]
     Indication: BIPOLAR DISORDER

REACTIONS (3)
  - GESTATIONAL HYPERTENSION [None]
  - CHOLECYSTITIS [None]
  - MATERNAL EXPOSURE DURING PREGNANCY [None]
